FAERS Safety Report 6711081-4 (Version None)
Quarter: 2010Q2

REPORT INFORMATION
  Report Type: 
  Country: None (occurrence: None)
  Receive Date: 20100505
  Receipt Date: 20090427
  Transmission Date: 20101027
  Serious: No
  Sender: FDA-Public Use
  Company Number: US-KINGPHARMUSA00001-K200900504

PATIENT
  Sex: Female
  Weight: 90.703 kg

DRUGS (13)
  1. AVINZA [Suspect]
     Indication: OSTEOARTHRITIS
     Dosage: 120 MG, QD
     Route: 048
     Dates: start: 20080401
  2. LIDOCAINE                          /00033402/ [Concomitant]
     Indication: PAIN
     Dosage: UNK, BID
     Route: 061
  3. NEXIUM [Concomitant]
     Dosage: 40 MG, QD
     Route: 048
  4. AVALIDE [Concomitant]
     Dosage: UNK, QD
  5. AXERT [Concomitant]
     Indication: MIGRAINE
     Dosage: 12.5 MG, PRN
  6. ADVIL LIQUI-GELS [Concomitant]
     Indication: PAIN
     Dosage: UNK, PRN
  7. TOPAMAX [Concomitant]
     Indication: MIGRAINE
     Dosage: 50 MG, BID
  8. BISACODYL [Concomitant]
     Indication: CONSTIPATION
     Dosage: UNK
  9. BUSPAR [Concomitant]
     Dosage: 50 MG, BID
  10. DOCUSATE SODIUM [Concomitant]
     Indication: CONSTIPATION
     Dosage: 200 MG, QD
     Route: 048
  11. EFFEXOR [Concomitant]
     Dosage: 75 MG, TID
  12. ISOSORBIDE MONONITRATE [Concomitant]
     Indication: ANGINA PECTORIS
     Dosage: UNK
  13. ZANAFLEX [Concomitant]
     Dosage: 4 MG, QD

REACTIONS (1)
  - CONSTIPATION [None]
